FAERS Safety Report 17980869 (Version 1)
Quarter: 2020Q3

REPORT INFORMATION
  Report Type: Spontaneous
  Country: IT (occurrence: IT)
  Receive Date: 20200704
  Receipt Date: 20200704
  Transmission Date: 20201103
  Serious: Yes (Hospitalization, Other)
  Sender: FDA-Public Use
  Company Number: IT-SUN PHARMACEUTICAL INDUSTRIES LTD-2019R1-213995

PATIENT
  Age: 17 Year
  Sex: Male

DRUGS (2)
  1. CYCLOPHOSPHAMIDE. [Suspect]
     Active Substance: CYCLOPHOSPHAMIDE
     Indication: ANTIPHOSPHOLIPID SYNDROME
     Dosage: 500 MG/M^2
     Route: 065
  2. PREDNISONE. [Suspect]
     Active Substance: PREDNISONE
     Indication: ANTIPHOSPHOLIPID SYNDROME
     Dosage: 2 MILLIGRAM/KILOGRAM, DAILY
     Route: 065

REACTIONS (7)
  - Spinal compression fracture [Recovering/Resolving]
  - Red blood cell sedimentation rate increased [Recovering/Resolving]
  - Inflammatory marker increased [Recovering/Resolving]
  - C-reactive protein increased [Recovering/Resolving]
  - Drug ineffective [Unknown]
  - Leukocytosis [Recovering/Resolving]
  - Cushingoid [Recovering/Resolving]
